FAERS Safety Report 13293485 (Version 2)
Quarter: 2017Q3

REPORT INFORMATION
  Report Type: Spontaneous
  Country: US (occurrence: US)
  Receive Date: 20170303
  Receipt Date: 20170908
  Transmission Date: 20171127
  Serious: Yes (Death, Hospitalization)
  Sender: FDA-Public Use
  Company Number: US-JNJFOC-20170127156

PATIENT
  Age: 83 Year
  Sex: Female

DRUGS (1)
  1. XARELTO [Suspect]
     Active Substance: RIVAROXABAN
     Indication: DEEP VEIN THROMBOSIS
     Dosage: VARYING DOSES OF 15 MG AND 20 MG.
     Route: 048
     Dates: start: 20150701, end: 20150713

REACTIONS (3)
  - Ecchymosis [Unknown]
  - Fall [Unknown]
  - Intracranial haematoma [Unknown]

NARRATIVE: CASE EVENT DATE: 2015
